FAERS Safety Report 20726163 (Version 1)
Quarter: 2022Q2

REPORT INFORMATION
  Report Type: Spontaneous
  Country: US (occurrence: US)
  Receive Date: 20220419
  Receipt Date: 20220419
  Transmission Date: 20220721
  Serious: No
  Sender: FDA-Public Use
  Company Number: US-AMGEN-USASP2022063971

PATIENT
  Age: 65 Year
  Sex: Female

DRUGS (1)
  1. REPATHA [Suspect]
     Active Substance: EVOLOCUMAB
     Indication: Hepatic failure
     Dosage: 140 MILLIGRAM, Q2WK
     Route: 065

REACTIONS (3)
  - Wrong technique in product usage process [Unknown]
  - Off label use [Unknown]
  - Device difficult to use [Unknown]

NARRATIVE: CASE EVENT DATE: 20220410
